FAERS Safety Report 15220031 (Version 1)
Quarter: 2018Q3

REPORT INFORMATION
  Report Type: Spontaneous
  Country: US (occurrence: US)
  Receive Date: 20180731
  Receipt Date: 20180731
  Transmission Date: 20181010
  Serious: No
  Sender: FDA-Public Use
  Company Number: US-PFIZER INC-2018301492

PATIENT
  Age: 78 Year
  Sex: Female
  Weight: 56.69 kg

DRUGS (4)
  1. AZITHROMYCIN ANHYDROUS. [Concomitant]
     Active Substance: AZITHROMYCIN ANHYDROUS
     Dosage: 250 MG, DAILY (250 MG TABLET FIRST DAY 2 TABLETS, AFTER THAT 1 TABLET PER DAY BY MOUTH)
     Route: 048
     Dates: end: 20180723
  2. METHYLPREDNISOLONE. [Suspect]
     Active Substance: METHYLPREDNISOLONE
     Indication: BRONCHITIS
     Dosage: 6 TABLETS PER DAY, DECREASING 1 TABLET A DAY FOR 6 DAYS
     Route: 048
     Dates: start: 20180719, end: 20180724
  3. AZITHROMYCIN ANHYDROUS. [Concomitant]
     Active Substance: AZITHROMYCIN ANHYDROUS
     Indication: BRONCHITIS
     Dosage: 500 MG, (FIRST DAY 2 TABLETS)
     Route: 048
     Dates: start: 20180719
  4. METHYLPREDNISOLONE. [Suspect]
     Active Substance: METHYLPREDNISOLONE
     Indication: LUNG INFECTION
     Dosage: 6 TABLETS PER DAY, DECREASING 1 TABLET A DAY FOR 6 DAYS
     Route: 048
     Dates: start: 20180719, end: 20180724

REACTIONS (3)
  - Dizziness [Not Recovered/Not Resolved]
  - Blood pressure increased [Not Recovered/Not Resolved]
  - Vertigo [Not Recovered/Not Resolved]

NARRATIVE: CASE EVENT DATE: 201807
